FAERS Safety Report 6028966-7 (Version None)
Quarter: 2009Q1

REPORT INFORMATION
  Report Type: 
  Country: None (occurrence: None)
  Receive Date: 20090106
  Receipt Date: 20090102
  Transmission Date: 20090719
  Serious: Yes (Death)
  Sender: FDA-Public Use
  Company Number: PHHY2009BR00469

PATIENT
  Age: 13 Year
  Sex: Male

DRUGS (1)
  1. TRILEPTAL [Suspect]
     Indication: EPILEPSY
     Dosage: 3 TABLETS DAILY
     Route: 048

REACTIONS (4)
  - ABDOMINAL INJURY [None]
  - BRAIN INJURY [None]
  - RENAL FAILURE [None]
  - ROAD TRAFFIC ACCIDENT [None]
